FAERS Safety Report 4580496-5 (Version None)
Quarter: 2005Q1

REPORT INFORMATION
  Report Type: 
  Country: None (occurrence: None)
  Receive Date: 20050214
  Receipt Date: 20040209
  Transmission Date: 20050727
  Serious: No
  Sender: FDA-Public Use
  Company Number: US-GLAXOSMITHKLINE-A0497209A

PATIENT
  Age: 67 Year
  Sex: Male

DRUGS (6)
  1. LAMICTAL [Suspect]
     Indication: BIPOLAR DISORDER
     Dosage: 25MG PER DAY
     Route: 048
  2. ALTACE [Concomitant]
  3. ATENOLOL [Concomitant]
  4. LEXAPRO [Concomitant]
  5. LORAZEPAM [Concomitant]
     Route: 065
  6. KLONOPIN [Concomitant]
     Route: 065

REACTIONS (3)
  - CONFUSIONAL STATE [None]
  - FATIGUE [None]
  - SOMNOLENCE [None]
